FAERS Safety Report 5227049-3 (Version None)
Quarter: 2007Q1

REPORT INFORMATION
  Report Type: 
  Country: None (occurrence: None)
  Receive Date: 20070201
  Receipt Date: 20070201
  Transmission Date: 20070707
  Serious: Yes (Hospitalization)
  Sender: FDA-Public Use
  Company Number: None

PATIENT
  Age: 8 Year
  Sex: Female
  Weight: 27.2158 kg

DRUGS (1)
  1. TAMIFLU [Suspect]
     Indication: INFLUENZA
     Dosage: 60 MG TWICE DAILY PO
     Route: 048
     Dates: start: 20061222, end: 20061223

REACTIONS (5)
  - CONVULSION [None]
  - DIZZINESS [None]
  - EPISTAXIS [None]
  - PYREXIA [None]
  - VOMITING [None]
